FAERS Safety Report 8887442 (Version 1)
Quarter: 2012Q4

REPORT INFORMATION
  Report Type: Spontaneous
  Country: US (occurrence: None)
  Receive Date: 20121101
  Receipt Date: 20121101
  Transmission Date: 20130627
  Serious: No
  Sender: FDA-Public Use
  Company Number: None

PATIENT
  Age: 77 Year
  Sex: Female
  Weight: 90.72 kg

DRUGS (2)
  1. ANASTROZOLE [Suspect]
     Indication: BREAST CANCER
     Route: 048
     Dates: start: 20120907, end: 20120917
  2. ANASTROZOLE [Suspect]
     Indication: ESTROGEN RECEPTOR POSITIVE BREAST CANCER
     Route: 048
     Dates: start: 20120907, end: 20120917

REACTIONS (20)
  - Headache [None]
  - Tremor [None]
  - Pain [None]
  - Pyrexia [None]
  - Chills [None]
  - Vision blurred [None]
  - Visual impairment [None]
  - Balance disorder [None]
  - Gait disturbance [None]
  - Mental impairment [None]
  - Hyperhidrosis [None]
  - Nausea [None]
  - Decreased appetite [None]
  - Thirst [None]
  - Oropharyngeal pain [None]
  - Sleep disorder [None]
  - Musculoskeletal stiffness [None]
  - Musculoskeletal discomfort [None]
  - Asthenia [None]
  - Fatigue [None]
